FAERS Safety Report 14966688 (Version 2)
Quarter: 2018Q2

REPORT INFORMATION
  Report Type: Spontaneous
  Country: DE (occurrence: DE)
  Receive Date: 20180604
  Receipt Date: 20180608
  Transmission Date: 20180711
  Serious: Yes (Life-Threatening, Other)
  Sender: FDA-Public Use
  Company Number: DE-WEST-WARD PHARMACEUTICALS CORP.-DE-H14001-18-04497

PATIENT
  Age: 18 Year
  Sex: Female

DRUGS (4)
  1. EPIRUBICINE [Suspect]
     Active Substance: EPIRUBICIN
     Indication: EWING^S SARCOMA
  2. CELECOXIB. [Suspect]
     Active Substance: CELECOXIB
     Indication: EWING^S SARCOMA
     Route: 048
  3. DASATINIB. [Suspect]
     Active Substance: DASATINIB
     Indication: EWING^S SARCOMA
     Route: 048
  4. IMATINIB [Suspect]
     Active Substance: IMATINIB
     Indication: EWING^S SARCOMA
     Route: 048

REACTIONS (8)
  - Thrombocytopenia [Unknown]
  - Anxiety [Unknown]
  - Vomiting [Unknown]
  - Lymphopenia [Unknown]
  - Anaemia [Unknown]
  - Nausea [Unknown]
  - Depression [Unknown]
  - Neutropenia [Unknown]
